FAERS Safety Report 24746309 (Version 1)
Quarter: 2024Q4

REPORT INFORMATION
  Report Type: Spontaneous
  Country: FR (occurrence: FR)
  Receive Date: 20241218
  Receipt Date: 20241218
  Transmission Date: 20250115
  Serious: Yes (Death, Other)
  Sender: AUROBINDO
  Company Number: FR-AFSSAPS-LY2024001855

PATIENT
  Age: 72 Year
  Sex: Female
  Weight: 55 kg

DRUGS (14)
  1. CARBOPLATIN [Suspect]
     Active Substance: CARBOPLATIN
     Indication: Bronchial carcinoma
     Dosage: 340 MILLIGRAM, 1TOTAL
     Route: 042
     Dates: start: 20241024
  2. PEMETREXED [Suspect]
     Active Substance: PEMETREXED
     Indication: Bronchial carcinoma
     Dosage: 750 MILLIGRAM, 1TOTAL
     Route: 065
     Dates: start: 20241024
  3. RYBREVANT [Suspect]
     Active Substance: AMIVANTAMAB-VMJW
     Indication: Metastatic bronchial carcinoma
     Dosage: 350 MILLIGRAM, 1 TOTAL
     Route: 065
     Dates: start: 20241024
  4. RYBREVANT [Suspect]
     Active Substance: AMIVANTAMAB-VMJW
     Dosage: 1050 MILLIGRAM, 1TOTAL
     Route: 065
     Dates: start: 20241025
  5. APREPITANT [Concomitant]
     Active Substance: APREPITANT
     Indication: Product used for unknown indication
     Dosage: UNK
     Route: 065
  6. METHYLPREDNISOLONE [Concomitant]
     Active Substance: METHYLPREDNISOLONE
     Indication: Product used for unknown indication
     Dosage: UNK
     Route: 065
  7. ONDANSETRON [Concomitant]
     Active Substance: ONDANSETRON
     Indication: Product used for unknown indication
     Dosage: UNK
     Route: 065
  8. ACETAMINOPHEN [Concomitant]
     Active Substance: ACETAMINOPHEN
     Indication: Product used for unknown indication
     Dosage: UNK
     Route: 065
  9. DEXCHLORPHENIRAMINE [Concomitant]
     Active Substance: DEXCHLORPHENIRAMINE
     Indication: Product used for unknown indication
     Dosage: UNK
     Route: 065
  10. ELIQUIS [Concomitant]
     Active Substance: APIXABAN
     Indication: Product used for unknown indication
     Dosage: UNK
     Route: 065
  11. PAROXETINE [Concomitant]
     Active Substance: PAROXETINE
     Indication: Product used for unknown indication
     Dosage: UNK
     Route: 065
  12. ESOMEPRAZOLE [Concomitant]
     Active Substance: ESOMEPRAZOLE
     Indication: Product used for unknown indication
     Dosage: UNK
     Route: 065
  13. DOXYCYCLINE [Concomitant]
     Active Substance: DOXYCYCLINE
     Indication: Product used for unknown indication
     Dosage: UNK
     Route: 065
  14. PREDNISOLONE [Concomitant]
     Active Substance: PREDNISOLONE
     Indication: Product used for unknown indication
     Dosage: UNK
     Route: 065

REACTIONS (2)
  - Agranulocytosis [Fatal]
  - Multiple organ dysfunction syndrome [Fatal]

NARRATIVE: CASE EVENT DATE: 20241030
